FAERS Safety Report 6959562-2 (Version None)
Quarter: 2010Q3

REPORT INFORMATION
  Report Type: 
  Country: None (occurrence: None)
  Receive Date: 20100827
  Receipt Date: 20100816
  Transmission Date: 20110219
  Serious: No
  Sender: FDA-Public Use
  Company Number: 2010AP001675

PATIENT

DRUGS (4)
  1. CITALOPRAM HYDROBROMIDE [Suspect]
     Indication: ANXIETY
     Dosage: 20 MG TRPL
     Dates: start: 20090923
  2. BETAMETHASONE VALERATE [Suspect]
     Indication: DERMATITIS
     Dosage: 100 ML TRPL
     Dates: start: 20100415
  3. DIAZEPAM [Suspect]
     Indication: ANXIETY
     Dosage: 5 MG, TRPL
     Dates: start: 20090827
  4. TRAZODONE HCL [Suspect]
     Indication: ANXIETY
     Dosage: 100 MG TRPL
     Dates: start: 20090828, end: 20091101

REACTIONS (2)
  - CLEFT PALATE [None]
  - MATERNAL DRUGS AFFECTING FOETUS [None]
